FAERS Safety Report 24374992 (Version 1)
Quarter: 2024Q3

REPORT INFORMATION
  Report Type: Spontaneous
  Country: US (occurrence: US)
  Receive Date: 20240927
  Receipt Date: 20240927
  Transmission Date: 20241016
  Serious: Yes (Hospitalization, Other)
  Sender: ASTELLAS
  Company Number: US-ASTELLAS-2024-AER-007669

PATIENT
  Age: 54 Year
  Sex: Female

DRUGS (7)
  1. TACROLIMUS [Suspect]
     Active Substance: TACROLIMUS
     Indication: Renal transplant
     Route: 065
     Dates: start: 2020
  2. MYCOPHENOLIC ACID [Concomitant]
     Active Substance: MYCOPHENOLIC ACID
     Indication: Renal transplant
     Route: 065
     Dates: start: 2020
  3. PREDNISONE [Concomitant]
     Active Substance: PREDNISONE
     Indication: Renal transplant
     Dosage: TAPER
     Route: 048
     Dates: start: 2020
  4. PREDNISONE [Concomitant]
     Active Substance: PREDNISONE
     Route: 048
  5. THYMOCYTE IMMUNE GLOBULIN NOS [Concomitant]
     Active Substance: THYMOCYTE IMMUNE GLOBULIN NOS
     Indication: Renal transplant
     Dosage: 4 DOSES
     Route: 065
     Dates: start: 2020
  6. VALGANCICLOVIR [Concomitant]
     Active Substance: VALGANCICLOVIR
     Indication: Prophylaxis
     Route: 065
     Dates: start: 2020
  7. SULFAMETHOXAZOLE\TRIMETHOPRIM [Concomitant]
     Active Substance: SULFAMETHOXAZOLE\TRIMETHOPRIM
     Indication: Prophylaxis
     Route: 065
     Dates: start: 2020

REACTIONS (9)
  - Disseminated tuberculosis [Recovered/Resolved with Sequelae]
  - Infection reactivation [Recovered/Resolved with Sequelae]
  - Bone tuberculosis [Recovered/Resolved with Sequelae]
  - Tuberculoma [Recovered/Resolved with Sequelae]
  - Acid fast bacilli infection [Recovered/Resolved]
  - Perinephric collection [Unknown]
  - Tuberculoma of central nervous system [Recovered/Resolved with Sequelae]
  - Polyomavirus viraemia [Unknown]
  - Pleural effusion [Unknown]
